FAERS Safety Report 25700623 (Version 1)
Quarter: 2025Q3

REPORT INFORMATION
  Report Type: Spontaneous
  Country: MX (occurrence: MX)
  Receive Date: 20250819
  Receipt Date: 20250819
  Transmission Date: 20251020
  Serious: Yes (Other)
  Sender: SANDOZ
  Company Number: MX-002147023-NVSC2025MX118947

PATIENT
  Age: 54 Year
  Sex: Female
  Weight: 75 kg

DRUGS (7)
  1. ANASTROZOLE [Suspect]
     Active Substance: ANASTROZOLE
     Indication: Product used for unknown indication
     Dosage: 1 DOSAGE FORM, QD
     Route: 048
     Dates: start: 202407
  2. KISQALI [Suspect]
     Active Substance: RIBOCICLIB SUCCINATE
     Dosage: 2 DOSAGE FORM (200MG), QD (JAN OR FEB  2025)
     Route: 048
  3. KISQALI [Suspect]
     Active Substance: RIBOCICLIB SUCCINATE
     Dosage: 2 DOSAGE FORM (TOGETHER), QD
     Route: 048
     Dates: start: 2024
  4. KISQALI [Suspect]
     Active Substance: RIBOCICLIB SUCCINATE
     Indication: Breast cancer
     Dosage: 1 DOSAGE FORM, Q8H
     Route: 048
  5. KISQALI [Suspect]
     Active Substance: RIBOCICLIB SUCCINATE
     Dosage: 2 DOSAGE FORM, QD
     Route: 048
     Dates: start: 202501
  6. KISQALI [Suspect]
     Active Substance: RIBOCICLIB SUCCINATE
     Dosage: 1 DOSAGE FORM, TID
     Route: 048
     Dates: start: 202407, end: 202501
  7. KISQALI [Suspect]
     Active Substance: RIBOCICLIB SUCCINATE
     Dosage: 3 DOSAGE FORM (200MG), QD
     Route: 048
     Dates: start: 202407

REACTIONS (10)
  - Postoperative abscess [Not Recovered/Not Resolved]
  - Ulcer [Unknown]
  - Post procedural complication [Unknown]
  - Memory impairment [Not Recovered/Not Resolved]
  - Neoplasm [Unknown]
  - Breast discharge [Not Recovered/Not Resolved]
  - Infection [Unknown]
  - Pain [Not Recovered/Not Resolved]
  - Device dislocation [Unknown]
  - Inappropriate schedule of product administration [Unknown]

NARRATIVE: CASE EVENT DATE: 20240701
